FAERS Safety Report 25154853 (Version 2)
Quarter: 2025Q2

REPORT INFORMATION
  Report Type: Spontaneous
  Country: GB (occurrence: GB)
  Receive Date: 20250403
  Receipt Date: 20250526
  Transmission Date: 20250717
  Serious: Yes (Other)
  Sender: ROCHE
  Company Number: None

PATIENT
  Age: 7 Decade
  Sex: Male

DRUGS (2)
  1. TOCILIZUMAB [Suspect]
     Active Substance: TOCILIZUMAB
     Indication: Product used for unknown indication
     Route: 065
  2. ELREXFIO [Suspect]
     Active Substance: ELRANATAMAB-BCMM
     Indication: Product used for unknown indication
     Route: 065
     Dates: start: 20250321

REACTIONS (3)
  - Pancreatitis [Unknown]
  - Cytokine release syndrome [Unknown]
  - Hepatic failure [Unknown]
